FAERS Safety Report 12920455 (Version 29)
Quarter: 2019Q2

REPORT INFORMATION
  Report Type: Report from Study
  Country: CA (occurrence: CA)
  Receive Date: 20161108
  Receipt Date: 20190618
  Transmission Date: 20190711
  Serious: Yes (Death, Hospitalization, Other)
  Sender: FDA-Public Use
  Company Number: PHHY2011CA92426

PATIENT
  Age: 63 Year
  Sex: Female

DRUGS (9)
  1. SANDOSTATIN [Suspect]
     Active Substance: OCTREOTIDE ACETATE
     Indication: NEUROENDOCRINE TUMOUR
     Dosage: 50 UG, ONCE/SINGLE (TEST DOSE)
     Route: 058
     Dates: start: 20111012, end: 20111012
  2. SYNTHROID [Concomitant]
     Active Substance: LEVOTHYROXINE SODIUM
     Indication: PRODUCT USED FOR UNKNOWN INDICATION
     Route: 065
  3. SANDOSTATIN [Suspect]
     Active Substance: OCTREOTIDE ACETATE
     Dosage: 50 UG, ONCE/SINGLE (TEST DOSE)
     Route: 058
     Dates: start: 20140612, end: 20140612
  4. SANDOSTATIN LAR DEPOT [Suspect]
     Active Substance: OCTREOTIDE ACETATE
     Dosage: 30 MG, QMO EVERY 4 WEEKS
     Route: 030
     Dates: end: 20190530
  5. NOVO-RABEPRAZOLE [Concomitant]
     Indication: PRODUCT USED FOR UNKNOWN INDICATION
     Route: 065
  6. LOSARTAN. [Concomitant]
     Active Substance: LOSARTAN
     Indication: PRODUCT USED FOR UNKNOWN INDICATION
     Dosage: UNK
     Route: 065
  7. XARELTO [Concomitant]
     Active Substance: RIVAROXABAN
     Indication: PRODUCT USED FOR UNKNOWN INDICATION
     Dosage: 20 MG, QD (DAILY)
     Route: 048
  8. SANDOSTATIN LAR DEPOT [Suspect]
     Active Substance: OCTREOTIDE ACETATE
     Indication: NEUROENDOCRINE TUMOUR
     Dosage: 20 MG, QMO (EVERY 4 WEEKS)
     Route: 030
     Dates: start: 20140721
  9. WARFARINE [Concomitant]
     Active Substance: WARFARIN
     Indication: PRODUCT USED FOR UNKNOWN INDICATION
     Route: 065

REACTIONS (30)
  - Death [Fatal]
  - Intestinal obstruction [Unknown]
  - Bone pain [Unknown]
  - Decreased appetite [Recovered/Resolved]
  - Fall [Unknown]
  - Speech disorder [Unknown]
  - Vomiting [Unknown]
  - Asthenia [Unknown]
  - Abdominal discomfort [Unknown]
  - Muscle atrophy [Unknown]
  - Decreased appetite [Unknown]
  - Malaise [Unknown]
  - Metastases to lung [Unknown]
  - Weight decreased [Unknown]
  - Renal failure [Unknown]
  - Renal impairment [Unknown]
  - Blood pressure increased [Recovering/Resolving]
  - Metastases to liver [Unknown]
  - Urinary tract stoma complication [Recovering/Resolving]
  - Blood pressure decreased [Unknown]
  - Myocardial infarction [Unknown]
  - Kidney infection [Unknown]
  - Urinary tract infection [Unknown]
  - Metastases to bone [Unknown]
  - Abdominal pain upper [Recovered/Resolved]
  - Neuroendocrine tumour [Unknown]
  - Malignant neoplasm progression [Unknown]
  - Metastases to spine [Unknown]
  - Impaired healing [Recovering/Resolving]
  - Fatigue [Unknown]

NARRATIVE: CASE EVENT DATE: 20111013
